FAERS Safety Report 7393784-4 (Version None)
Quarter: 2011Q2

REPORT INFORMATION
  Report Type: 
  Country: None (occurrence: None)
  Receive Date: 20110405
  Receipt Date: 20110328
  Transmission Date: 20111010
  Serious: Yes (Hospitalization)
  Sender: FDA-Public Use
  Company Number: FR-ELI_LILLY_AND_COMPANY-FR201101006695

PATIENT
  Age: 47 Year
  Sex: Female
  Weight: 82 kg

DRUGS (7)
  1. ALPRAZOLAM [Concomitant]
     Indication: MAJOR DEPRESSION
     Dosage: 1 MG, QD
     Route: 048
     Dates: start: 20110105
  2. TERCIAN [Concomitant]
     Dosage: 45 DF, QD
     Dates: start: 20110105
  3. ZYPREXA [Suspect]
     Dosage: 30 MG, QD
     Route: 048
     Dates: start: 20110120, end: 20110125
  4. TERCIAN [Concomitant]
     Indication: MAJOR DEPRESSION
     Dosage: 100 MG, QD
     Dates: start: 20110119
  5. ZYPREXA [Suspect]
     Indication: MAJOR DEPRESSION
     Dosage: 20 MG, QD
     Route: 048
     Dates: start: 20110103, end: 20110120
  6. TERCIAN [Concomitant]
     Dosage: 25 MG, QD
     Dates: start: 20110119, end: 20110124
  7. IMOVANE [Concomitant]
     Indication: MAJOR DEPRESSION
     Dosage: 7.5 MG, QD
     Route: 048
     Dates: start: 20110110

REACTIONS (4)
  - OFF LABEL USE [None]
  - OVERDOSE [None]
  - PSYCHOMOTOR RETARDATION [None]
  - RHABDOMYOLYSIS [None]
